FAERS Safety Report 24168761 (Version 2)
Quarter: 2024Q3

REPORT INFORMATION
  Report Type: Report from Study
  Country: TH (occurrence: None)
  Receive Date: 20240802
  Receipt Date: 20240809
  Transmission Date: 20241016
  Serious: Yes (Other)
  Sender: ASTRAZENECA
  Company Number: 2024A166139

PATIENT
  Age: 28900 Day
  Sex: Male
  Weight: 69 kg

DRUGS (2)
  1. IMFINZI [Suspect]
     Active Substance: DURVALUMAB
     Indication: Small cell lung cancer extensive stage
     Dosage: 1500.0MG NOT APPLICABLE
     Route: 042
     Dates: start: 20230328, end: 2024
  2. IMFINZI [Suspect]
     Active Substance: DURVALUMAB
     Indication: Small cell lung cancer extensive stage
     Dosage: 1000.0MG NOT APPLICABLE
     Route: 042
     Dates: start: 20240716

REACTIONS (6)
  - Type 1 diabetes mellitus [Unknown]
  - Pulmonary mass [Unknown]
  - Cholelithiasis [Unknown]
  - Prostatomegaly [Unknown]
  - Weight abnormal [Unknown]
  - Off label use [Unknown]

NARRATIVE: CASE EVENT DATE: 20230523
